FAERS Safety Report 8394961-6 (Version None)
Quarter: 2012Q1

REPORT INFORMATION
  Report Type: 
  Country: None (occurrence: None)
  Receive Date: 20120323
  Receipt Date: 20111128
  Transmission Date: 20120608
  Serious: Yes (Other)
  Sender: FDA-Public Use
  Company Number: 163-21880-11031773

PATIENT
  Age: 50 Year
  Sex: Female
  Weight: 78.0187 kg

DRUGS (20)
  1. REVLIMID [Suspect]
     Indication: MULTIPLE MYELOMA
     Dosage: SEE IMAGE
     Route: 048
     Dates: start: 20110726
  2. REVLIMID [Suspect]
     Indication: MULTIPLE MYELOMA
     Dosage: SEE IMAGE
     Route: 048
     Dates: start: 20110928
  3. REVLIMID [Suspect]
     Indication: MULTIPLE MYELOMA
     Dosage: SEE IMAGE
     Route: 048
     Dates: start: 20100830
  4. DOCUSATE SODIUM (DOCUSATE SODIUM) (CAPSULES) [Concomitant]
  5. POTASSIUM CHLORIDE [Concomitant]
  6. NEURONTIN (GABAPENTIN) (300 MILLIGRAM, TABLETS) [Concomitant]
  7. POLYETHYLENE GLYCOL (MACROGOL) (POWDER) [Concomitant]
  8. VALACYCLOVIR HYDROCHLORIDE (VALACICLOVIR HYDROCHLORIDE) (TABLETS) [Concomitant]
  9. ASA (ACETYLSALICYLIC ACID) (81 MILLIGRAM, ENTERIC-COATED TABLET) [Concomitant]
  10. ALPRAZOLAM [Concomitant]
  11. CITALOPRAM HYDROBROMIDE (CITALOPRAM HYDROBROMIDE) (TABLETS) [Concomitant]
  12. FENTANYL-100 [Concomitant]
  13. MULTIVITAMINS (MULTIVITAMINS) (TABLETS) [Concomitant]
  14. PSEUDO 60/TRIPROLIDINE (ACTIFED) (TABLETS) [Concomitant]
  15. DEXAMETHASONE [Concomitant]
  16. ALBUTEROL (SALBUTAMOL) (UNKNOWN) [Concomitant]
  17. CALCIUM/VITAMIN D3 (CALCIUM D3 ^STADA^) (TABLETS) [Concomitant]
  18. OMEPRAZOLE [Concomitant]
  19. PERCOCET-OXYCODONE (OXYCOCET) (TABLETS) [Concomitant]
  20. SODIUM CHLORIDE (SODIUM CHLORIDE) (SPRAY (NOT INHALATION)) [Concomitant]

REACTIONS (6)
  - UPPER RESPIRATORY TRACT INFECTION [None]
  - LUNG NEOPLASM [None]
  - MALAISE [None]
  - PROTEIN URINE PRESENT [None]
  - LIGHT CHAIN ANALYSIS INCREASED [None]
  - MONOCLONAL IMMUNOGLOBULIN PRESENT [None]
